FAERS Safety Report 19421236 (Version 1)
Quarter: 2021Q2

REPORT INFORMATION
  Report Type: Spontaneous
  Country: US (occurrence: US)
  Receive Date: 20210616
  Receipt Date: 20210616
  Transmission Date: 20210717
  Serious: Yes (Other)
  Sender: FDA-Public Use
  Company Number: US-MACLEODS PHARMACEUTICALS US LTD-MAC2021031479

PATIENT

DRUGS (5)
  1. METHOTREXATE. [Concomitant]
     Active Substance: METHOTREXATE
     Indication: PROPHYLAXIS AGAINST GRAFT VERSUS HOST DISEASE
     Dosage: UNK, AFTER TRANSPLANTATION
     Route: 042
  2. ACYCLOVIR. [Suspect]
     Active Substance: ACYCLOVIR
     Indication: PNEUMONIA CYTOMEGALOVIRAL
     Dosage: UNK UNK, TID, 2700 MG/M2 BODY SURFACE AREA.D ON DAY 65, EVERY 8 HRS
     Route: 042
  3. ACYCLOVIR. [Suspect]
     Active Substance: ACYCLOVIR
     Dosage: UNK UNK, TID, INCREASED TO 3000 MG/M2 BODY SURFACE AREA.D ON DAY 71, EVERY 8 HRS
     Route: 042
  4. METHOTREXATE. [Concomitant]
     Active Substance: METHOTREXATE
     Dosage: UNK, 10 MG/SQ. METER, BODY SURFACE AREA.D (WITH 12?MG MAX DOSE), EVERY 14 DAYS FROM ON DAY 32 TILL 1
     Route: 037
  5. METHOTREXATE. [Concomitant]
     Active Substance: METHOTREXATE
     Dosage: UNK, 10 MG/SQ. METER, BODY SURFACE AREA.D, (WITH 12?MG MAXIMUM DOSE)
     Route: 037

REACTIONS (6)
  - Tremor [Recovered/Resolved]
  - Neurotoxicity [Recovered/Resolved]
  - CSF myelin basic protein increased [Recovering/Resolving]
  - Seizure [Recovered/Resolved]
  - Lethargy [Recovered/Resolved]
  - Alanine aminotransferase increased [Unknown]
